FAERS Safety Report 8405074-9 (Version None)
Quarter: 2012Q2

REPORT INFORMATION
  Report Type: 
  Country: None (occurrence: None)
  Receive Date: 20120601
  Receipt Date: 20120517
  Transmission Date: 20120825
  Serious: Yes (Other)
  Sender: FDA-Public Use
  Company Number: CHPA2012US009656

PATIENT
  Age: 81 Year
  Sex: Female

DRUGS (3)
  1. EXCEDRIN EXTRA STRENGTH TABLETS [Suspect]
     Dosage: 2 DF, PER DAY
     Route: 048
  2. EXCEDRIN EXTRA STRENGTH TABLETS [Suspect]
     Dosage: 1 DF, PER DAY
     Route: 048
  3. VITAMINS NOS [Concomitant]
     Dosage: UNK, UNK

REACTIONS (7)
  - DIABETES MELLITUS [None]
  - OFF LABEL USE [None]
  - GLAUCOMA [None]
  - CEREBROVASCULAR ACCIDENT [None]
  - INCORRECT DRUG ADMINISTRATION DURATION [None]
  - URINARY TRACT INFECTION [None]
  - THERAPEUTIC RESPONSE UNEXPECTED [None]
